FAERS Safety Report 8232698-4 (Version None)
Quarter: 2012Q1

REPORT INFORMATION
  Report Type: 
  Country: None (occurrence: None)
  Receive Date: 20120323
  Receipt Date: 20120315
  Transmission Date: 20120608
  Serious: Yes (Hospitalization, Other)
  Sender: FDA-Public Use
  Company Number: PHEH2012US005976

PATIENT
  Sex: Female

DRUGS (1)
  1. MYFORTIC [Suspect]
     Indication: RENAL TRANSPLANT
     Dosage: 720 MG, BID
     Route: 048

REACTIONS (6)
  - RENAL FAILURE [None]
  - LOCALISED INFECTION [None]
  - FALL [None]
  - ASTHENIA [None]
  - RENAL DISORDER [None]
  - TREMOR [None]
